FAERS Safety Report 5179739-9 (Version None)
Quarter: 2006Q4

REPORT INFORMATION
  Report Type: 
  Country: None (occurrence: None)
  Receive Date: 20061211
  Receipt Date: 20061129
  Transmission Date: 20070319
  Serious: Yes (Hospitalization)
  Sender: FDA-Public Use
  Company Number: 2006145651

PATIENT
  Age: 34 Year
  Sex: Female

DRUGS (11)
  1. ZOLOFT [Suspect]
     Indication: DEPRESSION
     Dosage: 24 MG, ORAL
     Route: 048
     Dates: start: 20061115, end: 20061129
  2. DOGMATYL (SULPIRIDE) [Concomitant]
  3. LEXOTAN (BROMAZEPAM) [Concomitant]
  4. MEILAX (ETHYL LOFLAZEPATE) [Concomitant]
  5. AMOBAN (ZOPICLONE) [Concomitant]
  6. TOLEDOMN (MILNACIPRAN HYDROCHLORIDE) [Concomitant]
  7. CLARITHROMYCIN [Concomitant]
  8. LOXONIN (LOXOPROFEN SODIUM) [Concomitant]
  9. DEXCHLORPHENIRAMINE MALEATE [Concomitant]
  10. KAKKON-TO (HERBAL EXTRACTS NOS) [Concomitant]
  11. HERBAL PREPARATION (HERBAL PREPARATION) [Concomitant]

REACTIONS (3)
  - CONDITION AGGRAVATED [None]
  - NASOPHARYNGITIS [None]
  - NAUSEA [None]
